FAERS Safety Report 23570653 (Version 1)
Quarter: 2024Q1

REPORT INFORMATION
  Report Type: Spontaneous
  Country: PT (occurrence: PT)
  Receive Date: 20240227
  Receipt Date: 20240227
  Transmission Date: 20240409
  Serious: Yes (Death)
  Sender: FDA-Public Use
  Company Number: PT-ROCHE-3452556

PATIENT
  Age: 52 Year
  Sex: Female
  Weight: 58 kg

DRUGS (39)
  1. PACLITAXEL [Suspect]
     Active Substance: PACLITAXEL
     Indication: HER2 positive breast cancer
     Dosage: MOST RECENT DOSE: 11-FEB-2020
     Route: 042
     Dates: start: 20190813, end: 20200211
  2. EFUDEX [Suspect]
     Active Substance: FLUOROURACIL
     Indication: HER2 positive breast cancer
     Dosage: MOST RECENT DOSE: 03/JAN/2021
     Route: 042
     Dates: start: 20201013, end: 20210103
  3. CARBOPLATIN [Suspect]
     Active Substance: CARBOPLATIN
     Indication: HER2 positive breast cancer
     Dosage: Q3W (MOST RECENT DOSE: 30-DEC-2022)
     Route: 042
     Dates: start: 20221214, end: 20221230
  4. NAVELBINE [Suspect]
     Active Substance: VINORELBINE TARTRATE
     Indication: HER2 positive breast cancer
     Dosage: MOST RECENT DOSE: 01/OCT/2020
     Route: 042
     Dates: start: 20200310
  5. ADRUCIL [Suspect]
     Active Substance: FLUOROURACIL
     Indication: HER2 positive breast cancer
     Dosage: Q3W (MOST RECENT DOSE: 03-JAN-2021)
     Route: 042
     Dates: start: 20201013
  6. GEMZAR [Suspect]
     Active Substance: GEMCITABINE HYDROCHLORIDE
     Indication: HER2 positive breast cancer
     Dosage: MOST RECENT DOSE: 30/DEC/2022
     Route: 065
     Dates: start: 20221214, end: 20221230
  7. CAPECITABINE [Suspect]
     Active Substance: CAPECITABINE
     Indication: HER2 positive breast cancer
     Dosage: 1300 MICROGRAM, BID
     Route: 048
     Dates: start: 20181115, end: 20181206
  8. CAPECITABINE [Suspect]
     Active Substance: CAPECITABINE
     Dosage: 1800 MICROGRAM, BID
     Route: 048
     Dates: start: 20180529, end: 20180820
  9. CAPECITABINE [Suspect]
     Active Substance: CAPECITABINE
     Dosage: 1500 MICROGRAM, BID
     Route: 048
     Dates: start: 20180821, end: 20181114
  10. TAXOTERE [Suspect]
     Active Substance: DOCETAXEL
     Indication: HER2 positive breast cancer
     Dosage: Q3W (MOST RECENT DOSE: 29-JUN-2021)
     Route: 042
     Dates: start: 20210104, end: 20210629
  11. HERCEPTIN [Suspect]
     Active Substance: TRASTUZUMAB
     Indication: HER2 positive breast cancer
     Dosage: MOST RECENT DOSE PRIOR TO THE EVENT: 13-OCT-2020, 14-DEC-2022
     Route: 058
     Dates: start: 20180529, end: 20190729
  12. KADCYLA [Suspect]
     Active Substance: ADO-TRASTUZUMAB EMTANSINE
     Indication: HER2 positive breast cancer
     Dosage: MOST RECENT DOSE: 08-MAR-2018, 17-APR-2018
     Route: 042
     Dates: start: 20170614, end: 20180308
  13. TYKERB [Suspect]
     Active Substance: LAPATINIB DITOSYLATE
     Indication: HER2 positive breast cancer
     Dosage: 1000 MCG, QD (MOST RECENT DOSE: 23-JUL-2019)
     Route: 048
     Dates: start: 20190207, end: 20190723
  14. PERJETA [Suspect]
     Active Substance: PERTUZUMAB
     Indication: HER2 positive breast cancer
     Dosage: Q3W (MOST RECENT DOSE: 18-FEB-2020)
     Route: 042
     Dates: start: 20190903, end: 20200218
  15. FLUOROPLEX [Suspect]
     Active Substance: FLUOROURACIL
     Indication: HER2 positive breast cancer
     Dosage: MOST RECENT DOSE: 03-JAN-2021
     Route: 042
     Dates: start: 20201013, end: 20210103
  16. TREXALL [Suspect]
     Active Substance: METHOTREXATE SODIUM
     Indication: HER2 positive breast cancer
     Dosage: MOST RECENT DOSE: 03-JAN-2021
     Route: 042
     Dates: start: 20201013, end: 20210103
  17. FAM-TRASTUZUMAB DERUXTECAN-NXKI [Suspect]
     Active Substance: FAM-TRASTUZUMAB DERUXTECAN-NXKI
     Indication: HER2 positive breast cancer
     Dosage: UNK
     Route: 042
     Dates: start: 20210714, end: 20221124
  18. FAM-TRASTUZUMAB DERUXTECAN-NXKI [Suspect]
     Active Substance: FAM-TRASTUZUMAB DERUXTECAN-NXKI
     Dosage: UNK
     Route: 058
     Dates: start: 20190308, end: 20190729
  19. FAM-TRASTUZUMAB DERUXTECAN-NXKI [Suspect]
     Active Substance: FAM-TRASTUZUMAB DERUXTECAN-NXKI
     Dosage: 190.8 MICROGRAM
     Route: 042
     Dates: start: 20170614, end: 20180318
  20. CALCIUM CARBONATE [Concomitant]
     Active Substance: CALCIUM CARBONATE
     Dosage: ONGOING = NOT CHECKED
     Route: 065
     Dates: end: 20221230
  21. OXYCODONE [Concomitant]
     Active Substance: OXYCODONE\OXYCODONE HYDROCHLORIDE
     Dosage: ONGOING = NOT CHECKED
     Route: 065
     Dates: end: 20221230
  22. NALOXONE HYDROCHLORIDE\OXYCODONE HYDROCHLORIDE [Concomitant]
     Active Substance: NALOXONE HYDROCHLORIDE\OXYCODONE HYDROCHLORIDE
     Dosage: ONGOING = NOT CHECKED
     Route: 065
     Dates: start: 20170529, end: 20221230
  23. CETIRIZINE [Concomitant]
     Active Substance: CETIRIZINE HYDROCHLORIDE
     Dosage: ONGOING = NOT CHECKED
     Route: 065
     Dates: end: 20221230
  24. ZOLEDRONIC ACID [Concomitant]
     Active Substance: ZOLEDRONIC ACID
     Dosage: ONGOING = NOT CHECKED
     Route: 065
     Dates: start: 20170509, end: 20221230
  25. FILGRASTIM [Concomitant]
     Active Substance: FILGRASTIM
     Dosage: ONGOING = NOT CHECKED
     Route: 065
     Dates: end: 20221230
  26. ACETYLCYSTEINE [Concomitant]
     Active Substance: ACETYLCYSTEINE
     Dosage: ONGOING = NOT CHECKED
     Route: 065
     Dates: end: 20221230
  27. LOPERAMIDE [Concomitant]
     Active Substance: LOPERAMIDE
     Dosage: ONGOING = NOT CHECKED
     Route: 065
     Dates: end: 20221230
  28. PREGABALIN [Concomitant]
     Active Substance: PREGABALIN
     Dosage: ONGOING = NOT CHECKED
     Route: 065
     Dates: end: 20221230
  29. PYRIDOXINE [Concomitant]
     Active Substance: PYRIDOXINE
     Dosage: ONGOING = NOT CHECKED
     Route: 065
     Dates: end: 20221230
  30. ACETAMINOPHEN [Concomitant]
     Active Substance: ACETAMINOPHEN
     Dosage: ONGOING = NOT CHECKED
     Route: 065
     Dates: end: 20221230
  31. BACIDERMA [Concomitant]
     Dosage: ONGOING = NOT CHECKED
     Route: 065
     Dates: end: 20221230
  32. IPRATROPIUM BROMIDE [Concomitant]
     Active Substance: IPRATROPIUM BROMIDE\IPRATROPIUM BROMIDE ANHYDROUS
     Dosage: ONGOING = NOT CHECKED, 1.00 AMPULE
     Route: 065
     Dates: end: 20221230
  33. RAMIPRIL [Concomitant]
     Active Substance: RAMIPRIL
     Dosage: ONGOING = NOT CHECKED
     Route: 065
     Dates: start: 20180308, end: 20221230
  34. METOCLOPRAMIDE [Concomitant]
     Active Substance: METOCLOPRAMIDE
     Dosage: ONGOING = NOT CHECKED
     Route: 065
     Dates: end: 20221230
  35. NALOXONE [Concomitant]
     Active Substance: NALOXONE
     Dosage: ONGOING = NOT CHECKED
     Route: 065
     Dates: end: 20221230
  36. BUDESONIDE [Concomitant]
     Active Substance: BUDESONIDE
     Dosage: ONGOING = NOT CHECKED
     Route: 065
     Dates: end: 20221230
  37. IVABRADINE [Concomitant]
     Active Substance: IVABRADINE
     Dosage: UNK
     Route: 065
     Dates: start: 20180308, end: 20221230
  38. BISOPROLOL [Concomitant]
     Active Substance: BISOPROLOL\BISOPROLOL FUMARATE
     Dosage: ONGOING = NOT CHECKED
     Route: 065
     Dates: start: 20171129, end: 20221230
  39. CHOLECALCIFEROL [Concomitant]
     Active Substance: CHOLECALCIFEROL
     Dosage: ONGOING = NOT CHECKED
     Route: 065
     Dates: end: 20221230

REACTIONS (3)
  - Pancytopenia [Fatal]
  - Febrile neutropenia [Fatal]
  - Pneumonia [Fatal]

NARRATIVE: CASE EVENT DATE: 20221227
